FAERS Safety Report 5904467-9 (Version None)
Quarter: 2008Q3

REPORT INFORMATION
  Report Type: 
  Country: None (occurrence: None)
  Receive Date: 20080909
  Receipt Date: 20080624
  Transmission Date: 20090109
  Serious: Yes (Hospitalization)
  Sender: FDA-Public Use
  Company Number: 163-20785-07111091

PATIENT
  Age: 67 Year
  Sex: Female

DRUGS (8)
  1. THALOMID [Suspect]
     Indication: MULTIPLE MYELOMA
     Dosage: 100 MG, DAILY, ORAL ; 50 MG, DAILY, ORAL ; 50 QOD, ORAL
     Route: 048
     Dates: start: 20071009, end: 20071101
  2. THALOMID [Suspect]
     Indication: MULTIPLE MYELOMA
     Dosage: 100 MG, DAILY, ORAL ; 50 MG, DAILY, ORAL ; 50 QOD, ORAL
     Route: 048
     Dates: start: 20070815
  3. THALOMID [Suspect]
     Indication: MULTIPLE MYELOMA
     Dosage: 100 MG, DAILY, ORAL ; 50 MG, DAILY, ORAL ; 50 QOD, ORAL
     Route: 048
     Dates: start: 20070925
  4. DEXAMETHASONE TAB [Concomitant]
  5. ALLPURINOL (ALLOPURINOL) [Concomitant]
  6. ZOMETA [Concomitant]
  7. PREDNISONE [Concomitant]
  8. TOPROL-XL [Concomitant]

REACTIONS (4)
  - ANXIETY [None]
  - CONFUSIONAL STATE [None]
  - MENTAL STATUS CHANGES [None]
  - TREMOR [None]
